FAERS Safety Report 9700741 (Version 2)
Quarter: 2013Q4

REPORT INFORMATION
  Report Type: Spontaneous
  Country: US (occurrence: US)
  Receive Date: 20131121
  Receipt Date: 20131121
  Transmission Date: 20140711
  Serious: No
  Sender: FDA-Public Use
  Company Number: US-PFIZER INC-2013288191

PATIENT
  Sex: 0

DRUGS (1)
  1. PHENYTOIN [Suspect]
     Dosage: 50 MG, UNK

REACTIONS (2)
  - Vomiting [Unknown]
  - Malabsorption [Unknown]
